FAERS Safety Report 22156959 (Version 1)
Quarter: 2023Q1

REPORT INFORMATION
  Report Type: Spontaneous
  Country: US (occurrence: US)
  Receive Date: 20230330
  Receipt Date: 20230330
  Transmission Date: 20230417
  Serious: Yes (Death, Other)
  Sender: FDA-Public Use
  Company Number: US-PFIZER INC-PV202300049621

PATIENT
  Age: 65 Year
  Sex: Female

DRUGS (1)
  1. IBRANCE [Suspect]
     Active Substance: PALBOCICLIB
     Indication: Neuroendocrine carcinoma
     Dosage: 75 MG (DAYS 1-8 AND 15-21 OF 28 DAY CYCLE)

REACTIONS (2)
  - Death [Fatal]
  - Off label use [Unknown]
